FAERS Safety Report 6760745-5 (Version None)
Quarter: 2010Q2

REPORT INFORMATION
  Report Type: 
  Country: None (occurrence: None)
  Receive Date: 20100607
  Receipt Date: 20100607
  Transmission Date: 20101027
  Serious: Yes (Other)
  Sender: FDA-Public Use
  Company Number: None

PATIENT
  Sex: Male
  Weight: 90.7194 kg

DRUGS (1)
  1. PREZISTA [Suspect]
     Indication: HIV INFECTION
     Dates: start: 20100219, end: 20100606

REACTIONS (9)
  - AMNESIA [None]
  - ARTHRALGIA [None]
  - DIZZINESS [None]
  - DYSSTASIA [None]
  - METAMORPHOPSIA [None]
  - PETECHIAE [None]
  - RASH [None]
  - VISION BLURRED [None]
  - WEIGHT INCREASED [None]
